FAERS Safety Report 5822734-4 (Version None)
Quarter: 2008Q3

REPORT INFORMATION
  Report Type: 
  Country: None (occurrence: None)
  Receive Date: 20080725
  Receipt Date: 20070920
  Transmission Date: 20090109
  Serious: No
  Sender: FDA-Public Use
  Company Number: US-AMGEN-KDL244290

PATIENT

DRUGS (2)
  1. EPOGEN [Suspect]
     Indication: ANAEMIA
  2. PROCRIT [Suspect]

REACTIONS (1)
  - ANTI-ERYTHROPOIETIN ANTIBODY [None]
